FAERS Safety Report 18511822 (Version 3)
Quarter: 2021Q1

REPORT INFORMATION
  Report Type: Spontaneous
  Country: US (occurrence: US)
  Receive Date: 20201117
  Receipt Date: 20210302
  Transmission Date: 20210419
  Serious: No
  Sender: FDA-Public Use
  Company Number: US-SA-2020SA319524

PATIENT
  Age: 91 Year
  Sex: Female

DRUGS (1)
  1. LANTUS SOLOSTAR [Suspect]
     Active Substance: INSULIN GLARGINE
     Indication: TYPE 2 DIABETES MELLITUS
     Dosage: 12?16 UNITS EVERY EVENING(QD )
     Route: 065
     Dates: start: 202003

REACTIONS (3)
  - Blood glucose increased [Unknown]
  - Device issue [Unknown]
  - Needle issue [Unknown]
